FAERS Safety Report 6856632-4 (Version None)
Quarter: 2010Q2

REPORT INFORMATION
  Report Type: 
  Country: None (occurrence: None)
  Receive Date: 20100630
  Receipt Date: 20100526
  Transmission Date: 20101027
  Serious: No
  Sender: FDA-Public Use
  Company Number: 1000014093

PATIENT
  Age: 52 Year
  Sex: Female

DRUGS (1)
  1. BYSTOLIC [Suspect]
     Indication: SINUS TACHYCARDIA
     Dosage: 5 MG (5 MG, 1 IN 1 D), ORAL
     Route: 048
     Dates: start: 20100101, end: 20100226

REACTIONS (2)
  - CHEST DISCOMFORT [None]
  - JOINT SWELLING [None]
